FAERS Safety Report 6242668-3 (Version None)
Quarter: 2009Q2

REPORT INFORMATION
  Report Type: 
  Country: None (occurrence: None)
  Receive Date: 20090624
  Receipt Date: 20090612
  Transmission Date: 20091009
  Serious: Yes (Other)
  Sender: FDA-Public Use
  Company Number: GB-ORACLE-2009S1000235

PATIENT
  Sex: Female

DRUGS (5)
  1. CUBICIN [Suspect]
     Indication: ENDOCARDITIS BACTERIAL
  2. CYCLOSPORINE [Interacting]
     Indication: APLASTIC ANAEMIA
  3. CIPROFLOXACIN [Interacting]
     Indication: ENDOCARDITIS BACTERIAL
  4. RIFAMPICIN [Interacting]
     Indication: ENDOCARDITIS BACTERIAL
  5. FLUCONAZOLE [Interacting]
     Indication: ENDOCARDITIS BACTERIAL

REACTIONS (1)
  - DRUG INTERACTION [None]
